FAERS Safety Report 11664443 (Version 1)
Quarter: 2015Q4

REPORT INFORMATION
  Report Type: Spontaneous
  Country: US (occurrence: US)
  Receive Date: 20151027
  Receipt Date: 20151027
  Transmission Date: 20160304
  Serious: No
  Sender: FDA-Public Use
  Company Number: US-ELI_LILLY_AND_COMPANY-US200911007128

PATIENT
  Sex: Female

DRUGS (2)
  1. FORTEO [Suspect]
     Active Substance: TERIPARATIDE
     Dosage: UNK, UNKNOWN
     Dates: start: 2009
  2. FORTEO [Suspect]
     Active Substance: TERIPARATIDE
     Indication: BONE DISORDER
     Dosage: UNK, UNKNOWN
     Dates: start: 200903, end: 2009

REACTIONS (8)
  - Acne [Unknown]
  - Pain in extremity [Unknown]
  - Swelling face [Unknown]
  - Herpes zoster [Unknown]
  - Feeling abnormal [Unknown]
  - Headache [Unknown]
  - Migraine [Unknown]
  - Arthralgia [Unknown]

NARRATIVE: CASE EVENT DATE: 2009
